FAERS Safety Report 9034766 (Version 1)
Quarter: 2013Q1

REPORT INFORMATION
  Report Type: Spontaneous
  Country: BR (occurrence: BR)
  Receive Date: 20130128
  Receipt Date: 20130128
  Transmission Date: 20140127
  Serious: Yes (Other)
  Sender: FDA-Public Use
  Company Number: BR-PFIZER INC-2009266193

PATIENT
  Sex: Female

DRUGS (4)
  1. CHAMPIX [Suspect]
     Indication: SMOKING CESSATION THERAPY
     Dosage: UNK
     Route: 048
     Dates: start: 2009
  2. CHAMPIX [Suspect]
     Dosage: 1 TABLET TWICE DAILY
     Route: 048
  3. BUPROPION HYDROCHLORIDE [Concomitant]
     Indication: ANXIETY
     Dosage: 2 TABLETS DAILY
     Dates: start: 2009
  4. BUPROPION HYDROCHLORIDE [Concomitant]
     Indication: DEPRESSION

REACTIONS (1)
  - Lung cyst [Not Recovered/Not Resolved]
